FAERS Safety Report 17581677 (Version 1)
Quarter: 2020Q1

REPORT INFORMATION
  Report Type: Spontaneous
  Country: SE (occurrence: SE)
  Receive Date: 20200325
  Receipt Date: 20200325
  Transmission Date: 20200409
  Serious: Yes (Other)
  Sender: FDA-Public Use
  Company Number: SE-TEVA-2020-SE-1208853

PATIENT
  Age: 60 Year
  Sex: Male

DRUGS (5)
  1. ANTABUS 400 MG BRUSTABLETT [Suspect]
     Active Substance: DISULFIRAM
     Indication: ALCOHOLISM
     Dosage: 1200 MG
     Route: 065
     Dates: start: 20200221, end: 20200224
  2. MIRTAZAPIN [Concomitant]
     Active Substance: MIRTAZAPINE
  3. BEVIPLEX FORTE [Concomitant]
  4. SOBRIL [Concomitant]
     Active Substance: OXAZEPAM
  5. LERGIGAN [Concomitant]
     Dosage: IF NECESSARY

REACTIONS (1)
  - Transaminases increased [Not Recovered/Not Resolved]

NARRATIVE: CASE EVENT DATE: 20200224
